FAERS Safety Report 8000973-4 (Version None)
Quarter: 2011Q4

REPORT INFORMATION
  Report Type: 
  Country: None (occurrence: None)
  Receive Date: 20111222
  Receipt Date: 20110404
  Transmission Date: 20120403
  Serious: No
  Sender: FDA-Public Use
  Company Number: US-GLAXOSMITHKLINE-A0686139A

PATIENT
  Age: 56 Year
  Sex: Female

DRUGS (9)
  1. ARMOUR [Concomitant]
  2. PROTONIX [Concomitant]
  3. FLUTICASONE PROPIONATE [Suspect]
     Indication: RHINITIS ALLERGIC
     Dosage: 2SPR PER DAY
     Route: 045
     Dates: start: 20050101
  4. VERAMYST [Suspect]
     Indication: RHINITIS ALLERGIC
     Dosage: 4PUFF TWICE PER DAY
     Route: 045
     Dates: start: 20070201
  5. ANTIHISTAMINES [Concomitant]
  6. ALLEGRA [Concomitant]
  7. RESTASIS [Concomitant]
  8. MULTI-VITAMIN [Concomitant]
  9. FLONASE [Suspect]
     Indication: RHINITIS ALLERGIC
     Dosage: 2SPR PER DAY
     Route: 045

REACTIONS (6)
  - DRUG INEFFECTIVE [None]
  - COUGH [None]
  - OVERDOSE [None]
  - PRODUCT ODOUR ABNORMAL [None]
  - ILL-DEFINED DISORDER [None]
  - PRODUCT QUALITY ISSUE [None]
